FAERS Safety Report 6265467-5 (Version None)
Quarter: 2009Q3

REPORT INFORMATION
  Report Type: 
  Country: None (occurrence: None)
  Receive Date: 20090713
  Receipt Date: 20090708
  Transmission Date: 20100115
  Serious: Yes (Death)
  Sender: FDA-Public Use
  Company Number: JP-ASTRAZENECA-2009SE04425

PATIENT
  Age: 67 Year
  Sex: Male

DRUGS (2)
  1. BLOPRESS [Suspect]
     Indication: HYPERTENSION
     Route: 048
     Dates: start: 20070401, end: 20081101
  2. HMG COA REDUCTASE INHIBITORS [Concomitant]
     Route: 048

REACTIONS (1)
  - SUDDEN DEATH [None]
